FAERS Safety Report 4846723-1 (Version None)
Quarter: 2005Q4

REPORT INFORMATION
  Report Type: 
  Country: None (occurrence: None)
  Receive Date: 20051202
  Receipt Date: 20051116
  Transmission Date: 20060501
  Serious: Yes (Other)
  Sender: FDA-Public Use
  Company Number: DSA_27467_2005

PATIENT
  Age: 21 Year
  Sex: Female

DRUGS (6)
  1. ATIVAN [Suspect]
     Dosage: DF
  2. EFFEXOR [Suspect]
     Indication: ANXIETY
     Dosage: 37.4 MG QD PO
     Route: 048
     Dates: start: 20051027
  3. EFFEXOR [Suspect]
     Indication: PANIC ATTACK
     Dosage: 37.4 MG QD PO
     Route: 048
     Dates: start: 20051027
  4. EFFEXOR [Suspect]
     Indication: POSTPARTUM DEPRESSION
     Dosage: 37.4 MG QD PO
     Route: 048
     Dates: start: 20051027
  5. EFFEXOR [Suspect]
     Indication: PROPHYLAXIS
     Dosage: 37.4 MG QD PO
     Route: 048
     Dates: start: 20051027
  6. SYNTHROID [Concomitant]

REACTIONS (4)
  - DRUG EXPOSURE DURING PREGNANCY [None]
  - INDUCED LABOUR [None]
  - INSOMNIA [None]
  - PROLONGED PREGNANCY [None]
